FAERS Safety Report 10190839 (Version 1)
Quarter: 2014Q2

REPORT INFORMATION
  Report Type: Spontaneous
  Country: US (occurrence: US)
  Receive Date: 20140523
  Receipt Date: 20140523
  Transmission Date: 20141212
  Serious: No
  Sender: FDA-Public Use
  Company Number: US-B.I. PHARMACEUTICALS,INC./RIDGEFIELD-2014-BI-21268BP

PATIENT
  Sex: 0

DRUGS (6)
  1. SPIRIVA [Suspect]
     Indication: ASTHMA
     Dosage: 18 MCG
     Route: 048
     Dates: start: 20140427
  2. MONTELUKAST [Concomitant]
     Indication: ASTHMA
     Route: 048
  3. LORAZEPAM [Concomitant]
     Indication: ANXIETY
     Dosage: 2 MG
     Route: 048
  4. LORAZEPAM [Concomitant]
     Indication: NEUROPATHY PERIPHERAL
  5. XANAX XR [Concomitant]
     Indication: ANXIETY
     Dosage: 1 MG
     Route: 048
  6. XANAX XR [Concomitant]
     Indication: NEUROPATHY PERIPHERAL

REACTIONS (2)
  - Muscle spasms [Not Recovered/Not Resolved]
  - Off label use [Unknown]
